FAERS Safety Report 8322193-6 (Version None)
Quarter: 2012Q2

REPORT INFORMATION
  Report Type: 
  Country: None (occurrence: None)
  Receive Date: 20120430
  Receipt Date: 20110527
  Transmission Date: 20120825
  Serious: No
  Sender: FDA-Public Use
  Company Number: US-COVIDIEN/TYCO HEALTHCARE/MALLINCKRODT-T201100881

PATIENT
  Age: 64 Year
  Sex: Female

DRUGS (3)
  1. VICKS CHILDREN'S NYQUIL NIGHT-TIME COLD/COUGH [Concomitant]
     Indication: SINUS DISORDER
  2. HYDROCODONE BITARTRATE + ACETAMINOPHEN [Suspect]
     Indication: BACK PAIN
     Dosage: 7.5/750 MG, ONLY TOOK 2 DOSES
     Route: 048
     Dates: start: 20110201, end: 20110201
  3. ALLEGRA-D 12 HOUR [Concomitant]
     Indication: MULTIPLE ALLERGIES

REACTIONS (5)
  - PRURITUS [None]
  - DRUG INEFFECTIVE [None]
  - ABDOMINAL PAIN UPPER [None]
  - VISION BLURRED [None]
  - HEADACHE [None]
